FAERS Safety Report 6993831-5 (Version None)
Quarter: 2010Q3

REPORT INFORMATION
  Report Type: 
  Country: None (occurrence: None)
  Receive Date: 20100917
  Receipt Date: 20100909
  Transmission Date: 20110219
  Serious: Yes (Other)
  Sender: FDA-Public Use
  Company Number: US-AMGEN-QUU437147

PATIENT

DRUGS (4)
  1. NEULASTA [Suspect]
     Indication: CHEMOTHERAPY
     Route: 065
  2. PACLITAXEL [Concomitant]
  3. CARBOPLATIN [Concomitant]
  4. HERCEPTIN [Concomitant]

REACTIONS (1)
  - NEUTROPENIA [None]
